FAERS Safety Report 21913713 (Version 1)
Quarter: 2023Q1

REPORT INFORMATION
  Report Type: Spontaneous
  Country: US (occurrence: US)
  Receive Date: 20230125
  Receipt Date: 20230125
  Transmission Date: 20230418
  Serious: No
  Sender: FDA-Public Use
  Company Number: US-ALLERGAN-2216028US

PATIENT
  Sex: Female

DRUGS (6)
  1. BOTULINUM TOXIN TYPE A [Suspect]
     Active Substance: BOTULINUM TOXIN TYPE A
     Indication: Tremor
     Dosage: 10 UNITS, SINGLE
     Dates: start: 20170206, end: 20210206
  2. BOTULINUM TOXIN TYPE A [Suspect]
     Active Substance: BOTULINUM TOXIN TYPE A
     Indication: Dystonic tremor
     Dosage: 10 UNITS, SINGLE
     Dates: start: 20170206, end: 20170206
  3. PROPRANOLOL HYDROCHLORIDE [Concomitant]
     Active Substance: PROPRANOLOL HYDROCHLORIDE
     Dosage: 10 MG WHEN NEEDED
  4. TOPAMAX [Concomitant]
     Active Substance: TOPIRAMATE
     Dosage: 125 MG, QD
  5. PRIMIDONE [Concomitant]
     Active Substance: PRIMIDONE
     Dosage: 50 MG, Q3PM
  6. PRIMIDONE [Concomitant]
     Active Substance: PRIMIDONE
     Dosage: 100 MG Q8AM

REACTIONS (3)
  - Off label use [Unknown]
  - Drug ineffective for unapproved indication [Unknown]
  - Muscular weakness [Unknown]
